FAERS Safety Report 8070120-1 (Version None)
Quarter: 2012Q1

REPORT INFORMATION
  Report Type: 
  Country: None (occurrence: None)
  Receive Date: 20120125
  Receipt Date: 20120118
  Transmission Date: 20120608
  Serious: Yes (Death, Hospitalization)
  Sender: FDA-Public Use
  Company Number: GB-ELI_LILLY_AND_COMPANY-GB201111007486

PATIENT
  Sex: Male
  Weight: 77 kg

DRUGS (14)
  1. SIMVASTATIN [Concomitant]
     Indication: HYPERCHOLESTEROLAEMIA
     Dosage: 40 MG, UNK
     Route: 048
     Dates: start: 19880101
  2. VITAMIN B-12 [Concomitant]
  3. TAXOL [Suspect]
     Indication: NON-SMALL CELL LUNG CANCER
     Dosage: 175 MG/M2, UNK
     Route: 042
     Dates: start: 20110930, end: 20111109
  4. LOVAZA [Concomitant]
     Dosage: UNK, QD
     Route: 048
  5. PEMETREXED [Suspect]
     Indication: NON-SMALL CELL LUNG CANCER
     Dosage: 500 MG/M2, UNK
     Route: 042
     Dates: start: 20110930, end: 20111109
  6. DILTIAZEM HCL [Concomitant]
     Indication: ANGINA PECTORIS
     Dosage: 300 MG, UNK
     Route: 048
     Dates: start: 19880101
  7. LACTOBACILLUS [Concomitant]
     Dosage: UNK, QD
     Route: 048
  8. ACETAMINOPHEN [Concomitant]
     Indication: PAIN
     Dosage: 1 G, UNK
     Route: 048
     Dates: start: 20111112, end: 20111114
  9. LOSARTAN POTASSIUM [Concomitant]
     Indication: HYPERTENSION
     Dosage: 100 MG, UNK
     Route: 048
     Dates: start: 19880101
  10. FOLIC ACID [Concomitant]
     Indication: PROPHYLAXIS
     Dosage: 400 UG, QD
     Route: 048
     Dates: start: 20110916, end: 20111114
  11. ASPIRIN [Concomitant]
     Indication: ANGINA PECTORIS
     Dosage: 75 MG, QD
     Route: 048
     Dates: start: 19880101
  12. SOTALOL HCL [Concomitant]
     Indication: HYPERTENSION
     Dosage: 40 MG, UNK
     Route: 048
     Dates: start: 19880101
  13. CIPROFLOXACIN [Concomitant]
     Indication: PROPHYLAXIS
     Dosage: 500 MG, PRN
     Route: 048
     Dates: start: 19880101
  14. Q10 [Concomitant]
     Dosage: UNK, QD
     Route: 048

REACTIONS (3)
  - LARGE INTESTINE PERFORATION [None]
  - INTESTINAL OBSTRUCTION [None]
  - PNEUMONIA ASPIRATION [None]
